FAERS Safety Report 15931114 (Version 1)
Quarter: 2019Q1

REPORT INFORMATION
  Report Type: Spontaneous
  Country: US (occurrence: US)
  Receive Date: 20190207
  Receipt Date: 20190207
  Transmission Date: 20190417
  Serious: No
  Sender: FDA-Public Use
  Company Number: US-TEVA-2019-US-997993

PATIENT
  Sex: Female

DRUGS (4)
  1. TREXALL [Suspect]
     Active Substance: METHOTREXATE SODIUM
     Route: 065
  2. HUMIRA [Suspect]
     Active Substance: ADALIMUMAB
     Route: 058
  3. RHEUMATREX [Suspect]
     Active Substance: METHOTREXATE SODIUM
     Route: 065
  4. RASUVO [Suspect]
     Active Substance: METHOTREXATE SODIUM
     Route: 065

REACTIONS (1)
  - Drug ineffective [Unknown]
